FAERS Safety Report 16006018 (Version 3)
Quarter: 2021Q3

REPORT INFORMATION
  Report Type: Spontaneous
  Country: US (occurrence: US)
  Receive Date: 20190226
  Receipt Date: 20210728
  Transmission Date: 20211014
  Serious: Yes (Other)
  Sender: FDA-Public Use
  Company Number: PHEH2019US008433

PATIENT
  Sex: Female

DRUGS (1)
  1. TASIGNA [Suspect]
     Active Substance: NILOTINIB
     Indication: CHRONIC MYELOID LEUKAEMIA
     Dosage: UNK UNK, BID
     Route: 048
     Dates: start: 2015, end: 201808

REACTIONS (19)
  - Peripheral arterial occlusive disease [Unknown]
  - Injury [Unknown]
  - Pain [Unknown]
  - Peripheral vascular disorder [Unknown]
  - Aortic valve stenosis [Unknown]
  - Left ventricular hypertrophy [Unknown]
  - Limb injury [Unknown]
  - Anxiety [Unknown]
  - Mitral valve incompetence [Unknown]
  - Muscle spasms [Unknown]
  - Osteoporosis [Unknown]
  - Fall [Unknown]
  - Thrombocytosis [Unknown]
  - Arteriosclerosis [Unknown]
  - Emotional distress [Unknown]
  - Tricuspid valve incompetence [Unknown]
  - Left atrial dilatation [Unknown]
  - Gangrene [Unknown]
  - Left ventricular dysfunction [Unknown]
